FAERS Safety Report 8435249-4 (Version None)
Quarter: 2012Q2

REPORT INFORMATION
  Report Type: 
  Country: None (occurrence: None)
  Receive Date: 20120614
  Receipt Date: 20120606
  Transmission Date: 20120825
  Serious: Yes (Other)
  Sender: FDA-Public Use
  Company Number: US-UCBSA-059288

PATIENT
  Sex: Female

DRUGS (1)
  1. KEPPRA XR [Suspect]
     Dosage: 1000 MG
     Dates: start: 20090201

REACTIONS (2)
  - PREGNANCY [None]
  - ABORTION SPONTANEOUS [None]
